FAERS Safety Report 4395798-5 (Version None)
Quarter: 2004Q3

REPORT INFORMATION
  Report Type: 
  Country: None (occurrence: None)
  Receive Date: 20040713
  Receipt Date: 20040601
  Transmission Date: 20050211
  Serious: Yes (Other)
  Sender: FDA-Public Use
  Company Number: JP-ROCHE-369597

PATIENT
  Age: 87 Year
  Sex: Female

DRUGS (2)
  1. ROCEPHIN [Suspect]
     Indication: HEPATITIS
     Route: 042
     Dates: start: 20040601, end: 20040601
  2. ROCEPHIN [Suspect]
     Route: 042
     Dates: start: 20040512, end: 20040512

REACTIONS (2)
  - ANAPHYLACTIC SHOCK [None]
  - BLOOD PRESSURE DECREASED [None]
